FAERS Safety Report 25242408 (Version 1)
Quarter: 2025Q2

REPORT INFORMATION
  Report Type: Other
  Country: US (occurrence: US)
  Receive Date: 20250427
  Receipt Date: 20250427
  Transmission Date: 20250717
  Serious: No
  Sender: INNOGENIX, LLC
  Company Number: US-Innogenix, LLC-2175648

PATIENT

DRUGS (1)
  1. PILOCARPINE HYDROCHLORIDE [Suspect]
     Active Substance: PILOCARPINE HYDROCHLORIDE
     Indication: Sjogren^s syndrome

REACTIONS (5)
  - Genital dryness [Unknown]
  - Dry eye [Recovered/Resolved]
  - Lacrimation increased [Unknown]
  - Dysphagia [Unknown]
  - Dry mouth [Unknown]
